FAERS Safety Report 6036510-3 (Version None)
Quarter: 2009Q1

REPORT INFORMATION
  Report Type: 
  Country: None (occurrence: None)
  Receive Date: 20090114
  Receipt Date: 20090107
  Transmission Date: 20090719
  Serious: Yes (Hospitalization)
  Sender: FDA-Public Use
  Company Number: US-ASTRAZENECA-2009UW00521

PATIENT
  Age: 76 Year
  Sex: Female
  Weight: 59 kg

DRUGS (6)
  1. ENTOCORT EC [Suspect]
     Indication: COLITIS COLLAGENOUS
     Route: 048
     Dates: start: 20020101
  2. ENTOCORT EC [Suspect]
     Dosage: TAPERING REGIMEN - 6 MG FOR 2 WEEKS; 3 MG QD FOR 2 WEEKS; 3 MG QOD FOR 1 WEEK
     Route: 048
     Dates: start: 20081101
  3. ENTOCORT EC [Suspect]
     Dosage: 6 MG ON EVEN DAYS; 3 MG ON ODD DAYS
     Route: 048
  4. NEURONTIN [Concomitant]
  5. MULTI-VITAMINS [Concomitant]
  6. NEXIUM [Concomitant]
     Route: 048

REACTIONS (9)
  - CHILLS [None]
  - DIARRHOEA [None]
  - HEART RATE DECREASED [None]
  - HYPOTENSION [None]
  - ILL-DEFINED DISORDER [None]
  - OEDEMA PERIPHERAL [None]
  - PNEUMONIA [None]
  - PYREXIA [None]
  - TREMOR [None]
